FAERS Safety Report 7380927-1 (Version None)
Quarter: 2011Q1

REPORT INFORMATION
  Report Type: 
  Country: None (occurrence: None)
  Receive Date: 20110329
  Receipt Date: 20110322
  Transmission Date: 20110831
  Serious: Yes (Death)
  Sender: FDA-Public Use
  Company Number: PHHY2011US17062

PATIENT
  Sex: Female
  Weight: 80 kg

DRUGS (8)
  1. NORVASC [Concomitant]
     Route: 048
  2. SYNTHROID [Concomitant]
  3. TOBI [Suspect]
     Dosage: 300 MG, BID
     Dates: start: 20101217
  4. MORPHINE [Concomitant]
     Indication: DYSPNOEA
     Dosage: 20 MG, UNK
     Route: 048
  5. AMITRIPTYLINE [Concomitant]
     Route: 048
  6. TOBI [Suspect]
     Indication: CYSTIC FIBROSIS
     Dosage: 300 MG, QD
     Dates: start: 20090831
  7. PLAVIX [Concomitant]
  8. TRICYCLIC ANTIDEPRESSANTS [Concomitant]

REACTIONS (1)
  - BRONCHIECTASIS [None]
